FAERS Safety Report 8442914-1 (Version None)
Quarter: 2012Q2

REPORT INFORMATION
  Report Type: 
  Country: None (occurrence: None)
  Receive Date: 20120615
  Receipt Date: 20120606
  Transmission Date: 20120825
  Serious: Yes (Hospitalization)
  Sender: FDA-Public Use
  Company Number: DE-B.I. PHARMACEUTICALS,INC./RIDGEFIELD-2012-EU-03028EU

PATIENT
  Sex: Female
  Weight: 74 kg

DRUGS (8)
  1. DABIGATRAN [Suspect]
     Indication: HEART VALVE REPLACEMENT
     Dosage: 300 MG
     Route: 048
     Dates: start: 20120509, end: 20120605
  2. ALDACTONE [Concomitant]
     Indication: OLIGURIA
     Dosage: 100 MG
     Route: 048
     Dates: start: 20120511
  3. METOPROLOL SUCCINATE [Concomitant]
     Indication: ARRHYTHMIA
     Dosage: 2 ANZ
     Route: 048
     Dates: start: 20120516
  4. PANTOPRAZOLE [Concomitant]
     Indication: PROPHYLAXIS
     Dosage: 40 MG
     Dates: start: 20120508
  5. PREDNISONE TAB [Concomitant]
     Indication: PERICARDIAL EFFUSION
     Route: 048
     Dates: start: 20120515
  6. ASPIRIN [Concomitant]
     Indication: ARRHYTHMIA
     Dosage: 100 MG
     Route: 048
     Dates: start: 20120519
  7. IBUPROFEN [Concomitant]
     Indication: PERICARDIAL EFFUSION
     Route: 048
     Dates: start: 20120515
  8. REKAWAN [Concomitant]
     Indication: ELECTROLYTE IMBALANCE
     Dates: start: 20120509

REACTIONS (4)
  - POST PROCEDURAL HAEMORRHAGE [None]
  - CEREBRAL ISCHAEMIA [None]
  - CEREBROVASCULAR ACCIDENT [None]
  - PERICARDIAL HAEMORRHAGE [None]
